FAERS Safety Report 7450423-1 (Version None)
Quarter: 2011Q2

REPORT INFORMATION
  Report Type: 
  Country: None (occurrence: None)
  Receive Date: 20110422
  Receipt Date: 20110412
  Transmission Date: 20111010
  Serious: Yes (Life-Threatening)
  Sender: FDA-Public Use
  Company Number: DSM-2011-00312

PATIENT
  Age: 62 Year
  Sex: Male

DRUGS (10)
  1. ALDACTONE [Suspect]
     Indication: PRODUCT USED FOR UNKNOWN INDICATION
     Dosage: ORAL
     Route: 048
     Dates: end: 20110117
  2. ALBUTEROL [Concomitant]
  3. MEPRONZINE (MEPROBAMATE, ACEPROMETAZINE MALEATE) [Suspect]
  4. IPRATROPIUM BROMIDE [Concomitant]
  5. AMLODIPINE BESYLATE AND OLMESARTAN MEDOXOMIL [Suspect]
     Indication: PRODUCT USED FOR UNKNOWN INDICATION
     Dosage: 40/10 MG, ORAL
     Route: 048
     Dates: start: 20100101, end: 20110117
  6. SERETIDE (FLUTICASONE PROPIONATE, SALMETEROL) [Concomitant]
  7. ATENOLOL [Concomitant]
  8. SIMVASTATIN [Concomitant]
  9. ESCITALOPRAM [Concomitant]
  10. NEXIUM [Suspect]

REACTIONS (5)
  - VASOPLEGIA SYNDROME [None]
  - CARDIO-RESPIRATORY ARREST [None]
  - RENAL FAILURE ACUTE [None]
  - HYPERKALAEMIA [None]
  - GASTROENTERITIS [None]
